FAERS Safety Report 23941612 (Version 2)
Quarter: 2024Q2

REPORT INFORMATION
  Report Type: Spontaneous
  Country: JP (occurrence: JP)
  Receive Date: 20240605
  Receipt Date: 20240619
  Transmission Date: 20240715
  Serious: Yes (Other)
  Sender: FDA-Public Use
  Company Number: JP-MSD-M2024-21069

PATIENT
  Age: 85 Year
  Sex: Female

DRUGS (1)
  1. KEYTRUDA [Suspect]
     Active Substance: PEMBROLIZUMAB
     Indication: Renal cell carcinoma
     Dosage: 200 MILLIGRAM, Q3W
     Route: 041

REACTIONS (1)
  - Rheumatoid arthritis [Recovered/Resolved]
